FAERS Safety Report 20998300 (Version 1)
Quarter: 2022Q2

REPORT INFORMATION
  Report Type: Spontaneous
  Country: US (occurrence: None)
  Receive Date: 20220622
  Receipt Date: 20220622
  Transmission Date: 20220721
  Serious: Yes (Hospitalization)
  Sender: FDA-Public Use
  Company Number: None

PATIENT
  Age: 56 Year
  Sex: Female

DRUGS (11)
  1. PRALUENT [Suspect]
     Active Substance: ALIROCUMAB
     Indication: Hyperlipidaemia
     Dosage: OTHER FREQUENCY : Q 2 WEEKS;?
     Route: 058
     Dates: start: 20220330, end: 20220525
  2. AMLODIPINE [Concomitant]
     Active Substance: AMLODIPINE BESYLATE
  3. CARVEDILOL [Concomitant]
     Active Substance: CARVEDILOL
  4. GABAPENTIN [Concomitant]
     Active Substance: GABAPENTIN
  5. HUMULIN NOS [Concomitant]
     Active Substance: INSULIN HUMAN
  6. LORAZEPAM [Concomitant]
     Active Substance: LORAZEPAM
  7. LOSARTAN [Concomitant]
     Active Substance: LOSARTAN
  8. OMEPRAZOLE [Concomitant]
     Active Substance: OMEPRAZOLE
  9. TORSEMIDE [Concomitant]
     Active Substance: TORSEMIDE
  10. VITAMIN D [Concomitant]
     Active Substance: VITAMIN D NOS
  11. ZETIA [Concomitant]
     Active Substance: EZETIMIBE

REACTIONS (4)
  - Thrombosis [None]
  - Cerebrovascular accident [None]
  - Myocardial infarction [None]
  - Atrial fibrillation [None]

NARRATIVE: CASE EVENT DATE: 20220525
